FAERS Safety Report 19142246 (Version 1)
Quarter: 2021Q2

REPORT INFORMATION
  Report Type: Spontaneous
  Country: US (occurrence: US)
  Receive Date: 20210415
  Receipt Date: 20210415
  Transmission Date: 20210717
  Serious: No
  Sender: FDA-Public Use
  Company Number: US-CHIASMA-2021CHI00030

PATIENT
  Sex: Male

DRUGS (1)
  1. MYCAPSSA [Suspect]
     Active Substance: OCTREOTIDE
     Dosage: 40 MG/DAY
     Route: 048
     Dates: start: 20201214

REACTIONS (1)
  - Flatulence [Unknown]
